FAERS Safety Report 22357041 (Version 3)
Quarter: 2023Q2

REPORT INFORMATION
  Report Type: Report from Study
  Country: US (occurrence: US)
  Receive Date: 20230523
  Receipt Date: 20230525
  Transmission Date: 20230721
  Serious: Yes (Hospitalization, Other)
  Sender: FDA-Public Use
  Company Number: US-ABBVIE-4753453

PATIENT
  Age: 86 Year
  Sex: Female

DRUGS (1)
  1. IMBRUVICA [Suspect]
     Active Substance: IBRUTINIB
     Indication: Chronic lymphocytic leukaemia
     Dosage: TIME INTERVAL: 0.33333333 DAYS: FORM STRENGTH: 140 MILLIGRAM
     Route: 048
     Dates: start: 20200727

REACTIONS (4)
  - Jaw operation [Unknown]
  - Pneumonia [Unknown]
  - Clostridium difficile infection [Unknown]
  - Malaise [Unknown]

NARRATIVE: CASE EVENT DATE: 20230429
